FAERS Safety Report 4327470-1 (Version None)
Quarter: 2004Q1

REPORT INFORMATION
  Report Type: 
  Country: None (occurrence: None)
  Receive Date: 20040325
  Receipt Date: 20040310
  Transmission Date: 20041129
  Serious: No
  Sender: FDA-Public Use
  Company Number: BRO-007194

PATIENT
  Age: 61 Year
  Sex: Male

DRUGS (6)
  1. IOPAMIDOL-370 [Suspect]
     Indication: ANGINA PECTORIS
     Dosage: 150 ML INTRACORONARY, A FEW MINS
     Route: 022
     Dates: start: 20040210, end: 20040210
  2. IOPAMIDOL-370 [Suspect]
     Indication: CORONARY ANGIOPLASTY
     Dosage: 150 ML INTRACORONARY, A FEW MINS
     Route: 022
     Dates: start: 20040210, end: 20040210
  3. ASPIRIN [Concomitant]
  4. TICLOPIDINE HCL [Concomitant]
  5. PRAVASTATIN [Concomitant]
  6. BANAN [Concomitant]

REACTIONS (9)
  - ANOREXIA [None]
  - BETA-N-ACETYL-D-GLUCOSAMINIDASE INCREASED [None]
  - COMA [None]
  - HYPONATRAEMIA [None]
  - NAUSEA [None]
  - PYREXIA [None]
  - RENAL TUBULAR DISORDER [None]
  - URINE SODIUM INCREASED [None]
  - VOMITING [None]
